FAERS Safety Report 17139342 (Version 1)
Quarter: 2019Q4

REPORT INFORMATION
  Report Type: Spontaneous
  Country: US (occurrence: US)
  Receive Date: 20191210
  Receipt Date: 20191210
  Transmission Date: 20200122
  Serious: Yes (Hospitalization)
  Sender: FDA-Public Use
  Company Number: None

PATIENT
  Sex: Male

DRUGS (1)
  1. HCG (HUMAN CHORIONIC GONADOTROPIN) [Suspect]
     Active Substance: GONADOTROPHIN, CHORIONIC
     Indication: INFERTILITY FEMALE
     Dosage: ?          OTHER FREQUENCY:3 TIMES PER WEEK;OTHER ROUTE:IN THE MUSCLE?
     Dates: start: 20190612

REACTIONS (3)
  - Blood pressure increased [None]
  - Dyspnoea [None]
  - Anxiety [None]
